FAERS Safety Report 16005436 (Version 1)
Quarter: 2019Q1

REPORT INFORMATION
  Report Type: Spontaneous
  Country: AU (occurrence: AU)
  Receive Date: 20190226
  Receipt Date: 20190226
  Transmission Date: 20190418
  Serious: Yes (Other)
  Sender: FDA-Public Use
  Company Number: AU-009507513-1802AUS013020

PATIENT
  Age: 27 Year
  Sex: Female
  Weight: 130 kg

DRUGS (2)
  1. IMPLANON [Suspect]
     Active Substance: ETONOGESTREL
     Indication: CONTRACEPTION
     Dosage: NEW ONE, RIGHT ARM
     Route: 058
     Dates: start: 20150804
  2. IMPLANON [Suspect]
     Active Substance: ETONOGESTREL
     Dosage: UNK
     Route: 059
     Dates: end: 20150804

REACTIONS (5)
  - Complication associated with device [Unknown]
  - Device deployment issue [Unknown]
  - Infertility female [Unknown]
  - Complication of device removal [Unknown]
  - Weight increased [Unknown]

NARRATIVE: CASE EVENT DATE: 20150804
